FAERS Safety Report 16157772 (Version 1)
Quarter: 2019Q2

REPORT INFORMATION
  Report Type: Spontaneous
  Country: US (occurrence: US)
  Receive Date: 20190228
  Receipt Date: 20190228
  Transmission Date: 20190711
  Serious: No
  Sender: FDA-Public Use
  Company Number: None

PATIENT
  Age: 39 Year
  Sex: Male
  Weight: 147 kg

DRUGS (1)
  1. BICTEGRAVIR/EMTRICITABINE/TENOFOVIR [Suspect]
     Active Substance: BICTEGRAVIR SODIUM\EMTRICITABINE\TENOFOVIR ALAFENAMIDE FUMARATE
     Indication: HIV INFECTION
     Dates: start: 20180904, end: 20181204

REACTIONS (5)
  - Alanine aminotransferase increased [None]
  - Liver function test [None]
  - Vomiting [None]
  - Nausea [None]
  - Aspartate aminotransferase increased [None]

NARRATIVE: CASE EVENT DATE: 20181204
